FAERS Safety Report 9492845 (Version 3)
Quarter: 2013Q3

REPORT INFORMATION
  Report Type: Spontaneous
  Country: US (occurrence: US)
  Receive Date: 20130831
  Receipt Date: 20130930
  Transmission Date: 20140515
  Serious: Yes (Other)
  Sender: FDA-Public Use
  Company Number: US-AMGEN-USASP2013059976

PATIENT
  Age: 83 Year
  Sex: Female
  Weight: 60 kg

DRUGS (5)
  1. SENSIPAR [Suspect]
     Indication: HYPERPARATHYROIDISM SECONDARY
     Dosage: 30 MG, QD
     Route: 065
     Dates: start: 20130711
  2. SENSIPAR [Suspect]
     Indication: HYPERCALCAEMIA
  3. TENORMIN [Concomitant]
     Indication: HYPERTENSION
     Dosage: 50
     Route: 048
  4. ULORIC [Concomitant]
     Indication: GOUT
     Dosage: UNK UNK, QD
     Route: 048
  5. AMLODIPINE [Concomitant]
     Indication: HYPERTENSION
     Dosage: 5 MG, BID
     Route: 048

REACTIONS (5)
  - Myocardial infarction [Recovered/Resolved]
  - Loss of consciousness [Recovered/Resolved]
  - Malaise [Recovered/Resolved]
  - Nausea [Recovered/Resolved]
  - Influenza [Recovered/Resolved]
